FAERS Safety Report 6420015-1 (Version None)
Quarter: 2009Q4

REPORT INFORMATION
  Report Type: 
  Country: None (occurrence: None)
  Receive Date: 20091029
  Receipt Date: 20080930
  Transmission Date: 20100525
  Serious: No
  Sender: FDA-Public Use
  Company Number: A0750050A

PATIENT
  Age: 51 Year
  Sex: Female

DRUGS (2)
  1. IMITREX [Suspect]
     Indication: MIGRAINE
     Route: 045
     Dates: start: 19970801, end: 19970801
  2. NO CONCURRENT MEDICATION [Concomitant]

REACTIONS (1)
  - VOMITING [None]
